FAERS Safety Report 7335336-8 (Version None)
Quarter: 2011Q1

REPORT INFORMATION
  Report Type: 
  Country: None (occurrence: None)
  Receive Date: 20110307
  Receipt Date: 20110224
  Transmission Date: 20110831
  Serious: Yes (Hospitalization)
  Sender: FDA-Public Use
  Company Number: DE-CUBIST-2011S1000132

PATIENT
  Age: 47 Year
  Sex: Male

DRUGS (2)
  1. CUBICIN [Suspect]
     Indication: BACTERIAL INFECTION
  2. OTHER ANTIMYCOTICS FOR SYSTEMIC USE [Concomitant]
     Route: 065

REACTIONS (2)
  - CHOLANGITIS [None]
  - GALLBLADDER DISORDER [None]
